FAERS Safety Report 13690902 (Version 3)
Quarter: 2017Q4

REPORT INFORMATION
  Report Type: Spontaneous
  Country: US (occurrence: US)
  Receive Date: 20170626
  Receipt Date: 20171226
  Transmission Date: 20180320
  Serious: No
  Sender: FDA-Public Use
  Company Number: US-CLOVIS ONCOLOGY-CLO-2017-000389

PATIENT
  Age: 52 Year
  Sex: Female

DRUGS (3)
  1. RUBRACA [Suspect]
     Active Substance: RUCAPARIB CAMSYLATE
     Indication: OVARIAN CANCER
     Dosage: 300 MG, BID
     Route: 048
     Dates: start: 20170422, end: 20170602
  2. RUBRACA [Suspect]
     Active Substance: RUCAPARIB CAMSYLATE
     Dosage: 600 MG, BID
     Route: 048
     Dates: start: 20170603
  3. RUBRACA [Suspect]
     Active Substance: RUCAPARIB CAMSYLATE
     Dosage: 600 MG, BID
     Dates: start: 20170422

REACTIONS (14)
  - Unevaluable event [Unknown]
  - Pain [Not Recovered/Not Resolved]
  - Pruritus [Recovered/Resolved]
  - Diarrhoea [Not Recovered/Not Resolved]
  - Accidental underdose [Unknown]
  - Vomiting [Recovering/Resolving]
  - Dyspepsia [Unknown]
  - Vitamin D decreased [Unknown]
  - Nausea [Recovering/Resolving]
  - Fatigue [Recovering/Resolving]
  - Photosensitivity reaction [Not Recovered/Not Resolved]
  - Blood cholesterol increased [Unknown]
  - Paraesthesia [Not Recovered/Not Resolved]
  - Parosmia [Unknown]

NARRATIVE: CASE EVENT DATE: 2017
